FAERS Safety Report 8852095 (Version 1)
Quarter: 2012Q4

REPORT INFORMATION
  Report Type: 
  Country: US (occurrence: US)
  Receive Date: 20121022
  Receipt Date: 20121022
  Transmission Date: 20130627
  Serious: No
  Sender: FDA-Public Use
  Company Number: US-BAUSCH-2011BL005964

PATIENT
  Age: 78 Year
  Sex: Female

DRUGS (3)
  1. NEOMYCIN AND POLYMYXIN B SULFATES AND HYDROCORTISONE [Suspect]
     Indication: EAR INFECTION
     Route: 001
     Dates: start: 20110515, end: 20110523
  2. SYNTHROID [Concomitant]
     Dates: start: 1976
  3. LACTULOSE [Concomitant]
     Dates: start: 1976

REACTIONS (3)
  - Hypoacusis [Not Recovered/Not Resolved]
  - Tinnitus [Not Recovered/Not Resolved]
  - Ear discomfort [Recovered/Resolved]
